FAERS Safety Report 19000590 (Version 2)
Quarter: 2021Q1

REPORT INFORMATION
  Report Type: Spontaneous
  Country: US (occurrence: US)
  Receive Date: 20210312
  Receipt Date: 20210317
  Transmission Date: 20210420
  Serious: No
  Sender: FDA-Public Use
  Company Number: US-ASTRAZENECA-2021A107420

PATIENT
  Age: 61 Year
  Sex: Female
  Weight: 73.5 kg

DRUGS (9)
  1. BYDUREON BCISE [Suspect]
     Active Substance: EXENATIDE
     Indication: TYPE 2 DIABETES MELLITUS
     Route: 065
     Dates: start: 2019
  2. GLIMEPRIDE [Concomitant]
     Active Substance: GLIMEPIRIDE
     Indication: DIABETES MELLITUS
  3. BYDUREON [Suspect]
     Active Substance: EXENATIDE
     Indication: TYPE 2 DIABETES MELLITUS
     Route: 065
  4. ASPIRIN. [Concomitant]
     Active Substance: ASPIRIN
  5. LISINOPRIL. [Concomitant]
     Active Substance: LISINOPRIL
  6. METFORMIN [Concomitant]
     Active Substance: METFORMIN HYDROCHLORIDE
     Indication: DIABETES MELLITUS
  7. ATORVASTATIN [Concomitant]
     Active Substance: ATORVASTATIN
  8. ATENOLOL. [Concomitant]
     Active Substance: ATENOLOL
  9. FISH OIL [Concomitant]
     Active Substance: FISH OIL

REACTIONS (6)
  - Incorrect dose administered by device [Unknown]
  - Blood glucose increased [Recovered/Resolved]
  - Device leakage [Unknown]
  - Depression [Recovered/Resolved]
  - Weight decreased [Not Recovered/Not Resolved]
  - Glycosylated haemoglobin increased [Unknown]

NARRATIVE: CASE EVENT DATE: 2020
